FAERS Safety Report 7752906-3 (Version None)
Quarter: 2011Q3

REPORT INFORMATION
  Report Type: 
  Country: None (occurrence: None)
  Receive Date: 20110915
  Receipt Date: 20110906
  Transmission Date: 20111222
  Serious: Yes (Hospitalization)
  Sender: FDA-Public Use
  Company Number: US-BAYER-201034711NA

PATIENT
  Age: 30 Year
  Sex: Female
  Weight: 73 kg

DRUGS (2)
  1. YAZ [Suspect]
     Indication: PREMENSTRUAL SYNDROME
     Dates: start: 20080501, end: 20080718
  2. ZITHROMAX [Concomitant]
     Dosage: UNK
     Dates: start: 20080701

REACTIONS (1)
  - DEEP VEIN THROMBOSIS [None]
